FAERS Safety Report 17205988 (Version 2)
Quarter: 2020Q1

REPORT INFORMATION
  Report Type: Spontaneous
  Country: DE (occurrence: DE)
  Receive Date: 20191227
  Receipt Date: 20200313
  Transmission Date: 20200409
  Serious: Yes (Other)
  Sender: FDA-Public Use
  Company Number: DE-SA-2019SA357283

PATIENT
  Age: 60 Year
  Sex: Female

DRUGS (1)
  1. DUPIXENT [Suspect]
     Active Substance: DUPILUMAB
     Indication: DERMATITIS ATOPIC
     Dosage: ACCORDING TO SCHEME 5 INJECTIONS
     Route: 058

REACTIONS (1)
  - Sudden hearing loss [Not Recovered/Not Resolved]

NARRATIVE: CASE EVENT DATE: 2019
